FAERS Safety Report 5853573-6 (Version None)
Quarter: 2008Q3

REPORT INFORMATION
  Report Type: 
  Country: None (occurrence: None)
  Receive Date: 20080822
  Receipt Date: 20080819
  Transmission Date: 20090109
  Serious: Yes (Life-Threatening, Other)
  Sender: FDA-Public Use
  Company Number: JP-BRISTOL-MYERS SQUIBB COMPANY-14308886

PATIENT
  Age: 66 Year
  Sex: Female

DRUGS (2)
  1. TAXOL [Suspect]
     Indication: OVARIAN CANCER
     Route: 042
     Dates: start: 20080519, end: 20080519
  2. PARAPLATIN [Suspect]
     Indication: OVARIAN CANCER
     Route: 042
     Dates: start: 20080519, end: 20080519

REACTIONS (3)
  - BLOOD BILIRUBIN ABNORMAL [None]
  - ECZEMA [None]
  - JAUNDICE [None]
